FAERS Safety Report 8448932-1 (Version None)
Quarter: 2012Q2

REPORT INFORMATION
  Report Type: 
  Country: None (occurrence: None)
  Receive Date: 20120619
  Receipt Date: 20120614
  Transmission Date: 20120825
  Serious: Yes (Hospitalization, Other)
  Sender: FDA-Public Use
  Company Number: FR-GLAXOSMITHKLINE-B0808086A

PATIENT
  Sex: Female

DRUGS (4)
  1. CRESTOR [Suspect]
     Indication: HYPERCHOLESTEROLAEMIA
     Route: 048
  2. REQUIP [Suspect]
     Indication: PARKINSON'S DISEASE
     Dosage: 17MG PER DAY
     Route: 048
  3. MODOPAR [Suspect]
     Indication: PARKINSON'S DISEASE
     Dosage: 875MG PER DAY
     Route: 048
  4. AMANTADINE HCL [Suspect]
     Indication: PARKINSON'S DISEASE
     Dosage: 100MG TWICE PER DAY
     Route: 048

REACTIONS (7)
  - CHEST DISCOMFORT [None]
  - DYSPNOEA EXERTIONAL [None]
  - GASTROINTESTINAL ULCER [None]
  - OESOPHAGITIS [None]
  - IRON DEFICIENCY ANAEMIA [None]
  - PALLOR [None]
  - TACHYCARDIA [None]
